FAERS Safety Report 8187301-9 (Version None)
Quarter: 2012Q1

REPORT INFORMATION
  Report Type: 
  Country: None (occurrence: None)
  Receive Date: 20120306
  Receipt Date: 20120223
  Transmission Date: 20120608
  Serious: Yes (Death, Hospitalization, Other)
  Sender: FDA-Public Use
  Company Number: BE-JNJFOC-20120301366

PATIENT
  Sex: Female

DRUGS (11)
  1. ALPRAZOLAM [Concomitant]
  2. BISOPROLOL FUMARATE [Concomitant]
  3. LEVOTHYROXINE SODIUM [Concomitant]
  4. MOVIPREP [Concomitant]
  5. LANITOP [Concomitant]
  6. XARELTO [Suspect]
     Indication: CEREBROVASCULAR ACCIDENT PROPHYLAXIS
     Route: 065
     Dates: start: 20111109, end: 20120124
  7. AMLODIPINE BESYLATE [Concomitant]
  8. ALLOPURINOL [Concomitant]
  9. BUMETANIDE [Concomitant]
  10. DEPAKENE [Concomitant]
  11. FERROUS GLUCONATE [Concomitant]

REACTIONS (4)
  - CARDIAC FAILURE [None]
  - RENAL FAILURE ACUTE [None]
  - URINARY TRACT INFECTION [None]
  - DEHYDRATION [None]
